FAERS Safety Report 18211882 (Version 1)
Quarter: 2020Q3

REPORT INFORMATION
  Report Type: Spontaneous
  Country: CN (occurrence: CN)
  Receive Date: 20200831
  Receipt Date: 20200831
  Transmission Date: 20201103
  Serious: Yes (Other)
  Sender: FDA-Public Use
  Company Number: CN-PFIZER INC-2020331886

PATIENT
  Age: 36 Year
  Sex: Female
  Weight: 65 kg

DRUGS (1)
  1. METHOTREXATE. [Suspect]
     Active Substance: METHOTREXATE
     Indication: ECTOPIC PREGNANCY
     Dosage: 20 MG, DAILY
     Route: 030
     Dates: start: 20200818, end: 20200822

REACTIONS (6)
  - Drug eruption [Unknown]
  - Rash erythematous [Recovering/Resolving]
  - Product use in unapproved indication [Unknown]
  - Pruritus [Recovered/Resolved]
  - Laryngeal oedema [Recovered/Resolved]
  - Off label use [Unknown]

NARRATIVE: CASE EVENT DATE: 20200818
